FAERS Safety Report 16307779 (Version 2)
Quarter: 2019Q2

REPORT INFORMATION
  Report Type: Spontaneous
  Country: PL (occurrence: PL)
  Receive Date: 20190514
  Receipt Date: 20190617
  Transmission Date: 20190711
  Serious: Yes (Death, Other)
  Sender: FDA-Public Use
  Company Number: PL-BRISTOL-MYERS SQUIBB COMPANY-BMS-2019-043657

PATIENT
  Age: 52 Year
  Sex: Male

DRUGS (6)
  1. WARFARIN SODIUM. [Suspect]
     Active Substance: WARFARIN SODIUM
     Indication: PULMONARY HYPERTENSION
     Dosage: 100 MILLIGRAM, QD
     Route: 065
  2. SPIRONOLACTONE. [Suspect]
     Active Substance: SPIRONOLACTONE
     Indication: PULMONARY HYPERTENSION
     Dosage: 100 MILLIGRAM, QD
     Route: 065
  3. FUROSEMIDE. [Suspect]
     Active Substance: FUROSEMIDE
     Indication: PULMONARY HYPERTENSION
     Dosage: 40 MILLIGRAM, QD
     Route: 048
  4. DIGOXIN. [Suspect]
     Active Substance: DIGOXIN
     Indication: PULMONARY HYPERTENSION
     Dosage: 0.1 MILLIGRAM, QD
     Route: 065
  5. REVATIO [Suspect]
     Active Substance: SILDENAFIL CITRATE
     Indication: PULMONARY HYPERTENSION
     Dosage: 60 MILLIGRAM, QD
     Route: 048
  6. VENTAVIS [Suspect]
     Active Substance: ILOPROST
     Indication: PULMONARY HYPERTENSION
     Dosage: 20 MILLIGRAM, TID
     Route: 048

REACTIONS (5)
  - Pneumonia [Fatal]
  - Fistula [Unknown]
  - Cardiac failure [Fatal]
  - Condition aggravated [Unknown]
  - Vascular malformation [Unknown]
